FAERS Safety Report 16975313 (Version 2)
Quarter: 2019Q4

REPORT INFORMATION
  Report Type: Spontaneous
  Country: FR (occurrence: FR)
  Receive Date: 20191030
  Receipt Date: 20191031
  Transmission Date: 20200122
  Serious: Yes (Life-Threatening)
  Sender: FDA-Public Use
  Company Number: FR-PFIZER INC-2019466774

PATIENT
  Age: 81 Year
  Sex: Female

DRUGS (8)
  1. TANGANIL [Suspect]
     Active Substance: ACETYLLEUCINE
     Dosage: 1 DF, DAILY
     Route: 048
     Dates: end: 20180930
  2. BETAHISTINE [Suspect]
     Active Substance: BETAHISTINE
     Dosage: 24 MG, DAILY
     Route: 048
     Dates: end: 20180930
  3. AMLOR [Suspect]
     Active Substance: AMLODIPINE BESYLATE
     Indication: HYPERTENSION
     Dosage: 1 DF, DAILY
     Route: 048
     Dates: end: 20180930
  4. LASILIX [Suspect]
     Active Substance: FUROSEMIDE
     Indication: HYPERTENSION
     Dosage: 1 DF, DAILY
     Route: 048
     Dates: end: 20180930
  5. ATARAX [Suspect]
     Active Substance: HYDROXYZINE HYDROCHLORIDE
     Dosage: 1 DF, DAILY
     Route: 048
     Dates: end: 20180930
  6. EUPANTOL [Suspect]
     Active Substance: PANTOPRAZOLE SODIUM
     Dosage: 1 DF, DAILY
     Route: 048
     Dates: end: 20180930
  7. HALDOL [Suspect]
     Active Substance: HALOPERIDOL
     Dosage: 18 GTT, DAILY
     Route: 048
     Dates: end: 20180930
  8. INNOHEP [Suspect]
     Active Substance: TINZAPARIN SODIUM
     Dosage: 0.5 ML, DAILY
     Route: 058
     Dates: end: 20180930

REACTIONS (2)
  - Anaemia [Recovering/Resolving]
  - Haematoma [Recovering/Resolving]

NARRATIVE: CASE EVENT DATE: 20180930
